FAERS Safety Report 9347793 (Version 1)
Quarter: 2013Q2

REPORT INFORMATION
  Report Type: Spontaneous
  Country: US (occurrence: US)
  Receive Date: 20130614
  Receipt Date: 20130614
  Transmission Date: 20140414
  Serious: No
  Sender: FDA-Public Use
  Company Number: US-PFIZER INC-2013174274

PATIENT
  Age: 63 Year
  Sex: Female
  Weight: 63.49 kg

DRUGS (5)
  1. LEVOXYL [Suspect]
     Indication: HYPOTHYROIDISM
     Dosage: 60 UG, 1X/DAY
     Route: 048
     Dates: end: 2003
  2. LEVOXYL [Suspect]
     Dosage: 88 UG, 1X/DAY
     Route: 048
     Dates: start: 2003
  3. ATENOLOL [Concomitant]
     Dosage: UNK
  4. PANTOPRAZOLE [Concomitant]
     Dosage: UNK
  5. LASIX [Concomitant]
     Dosage: UNK

REACTIONS (3)
  - Thyroid function test abnormal [Unknown]
  - Fatigue [Unknown]
  - Drug ineffective [Unknown]
